FAERS Safety Report 14143539 (Version 1)
Quarter: 2017Q4

REPORT INFORMATION
  Report Type: Report from Study
  Country: CA (occurrence: CA)
  Receive Date: 20171030
  Receipt Date: 20171030
  Transmission Date: 20180321
  Serious: Yes (Other)
  Sender: FDA-Public Use
  Company Number: CA-AMGEN-CANSL2017155615

PATIENT
  Age: 67 Year
  Sex: Female

DRUGS (2)
  1. ENBREL [Suspect]
     Active Substance: ETANERCEPT
     Indication: RHEUMATOID ARTHRITIS
     Dosage: 50 MG, UNK
     Route: 065
     Dates: start: 20170823
  2. ASPIRIN. [Concomitant]
     Active Substance: ASPIRIN
     Dosage: UNK

REACTIONS (11)
  - Eye haemorrhage [Unknown]
  - Pain in extremity [Unknown]
  - Heart rate abnormal [Unknown]
  - Abdominal pain upper [Unknown]
  - Limb discomfort [Unknown]
  - Malaise [Unknown]
  - Dizziness [Unknown]
  - Blood pressure increased [Unknown]
  - Myalgia [Unknown]
  - Dysstasia [Unknown]
  - Mobility decreased [Unknown]

NARRATIVE: CASE EVENT DATE: 2017
